FAERS Safety Report 8163526-3 (Version None)
Quarter: 2012Q1

REPORT INFORMATION
  Report Type: 
  Country: None (occurrence: None)
  Receive Date: 20120224
  Receipt Date: 20120215
  Transmission Date: 20120608
  Serious: No
  Sender: FDA-Public Use
  Company Number: US-JNJFOC-20120208699

PATIENT
  Sex: Female
  Weight: 80.74 kg

DRUGS (6)
  1. KLONOPIN [Concomitant]
     Indication: EPILEPSY
     Route: 048
     Dates: start: 20110901
  2. ZANAFLEX [Concomitant]
     Indication: MUSCLE SPASMS
     Route: 065
     Dates: start: 20110701
  3. FENTANYL-100 [Suspect]
     Indication: PAIN
     Route: 062
     Dates: start: 20111101
  4. NUVARING [Concomitant]
     Indication: CONTRACEPTION
     Route: 067
     Dates: start: 20080101
  5. DEPAKOTE [Concomitant]
     Indication: EPILEPSY
     Route: 048
     Dates: start: 20110901
  6. KETAMINE HYDROCHLORIDE [Concomitant]
     Indication: PHANTOM PAIN
     Route: 050
     Dates: start: 20111101

REACTIONS (3)
  - WRONG TECHNIQUE IN DRUG USAGE PROCESS [None]
  - DRUG LEVEL DECREASED [None]
  - PRODUCT QUALITY ISSUE [None]
